FAERS Safety Report 12094670 (Version 1)
Quarter: 2016Q1

REPORT INFORMATION
  Report Type: Spontaneous
  Country: IT (occurrence: IT)
  Receive Date: 20160219
  Receipt Date: 20160219
  Transmission Date: 20160526
  Serious: Yes (Hospitalization)
  Sender: FDA-Public Use
  Company Number: IT-JNJFOC-20160214104

PATIENT
  Age: 8 Year
  Sex: Male

DRUGS (4)
  1. TOPAMAX [Suspect]
     Active Substance: TOPIRAMATE
     Indication: IDIOPATHIC PARTIAL EPILEPSY
     Route: 048
     Dates: start: 20150808
  2. TOPAMAX [Suspect]
     Active Substance: TOPIRAMATE
     Indication: IDIOPATHIC PARTIAL EPILEPSY
     Route: 048
     Dates: start: 20150904
  3. TOPAMAX [Suspect]
     Active Substance: TOPIRAMATE
     Indication: IDIOPATHIC PARTIAL EPILEPSY
     Route: 048
     Dates: start: 20151109
  4. TOPAMAX [Suspect]
     Active Substance: TOPIRAMATE
     Indication: IDIOPATHIC PARTIAL EPILEPSY
     Route: 048
     Dates: start: 20151125, end: 20160202

REACTIONS (5)
  - Middle insomnia [Recovered/Resolved]
  - Irritability [Recovered/Resolved]
  - Anger [Recovered/Resolved]
  - Hypohidrosis [Recovered/Resolved]
  - Disturbance in attention [Unknown]

NARRATIVE: CASE EVENT DATE: 201508
